FAERS Safety Report 13093320 (Version 1)
Quarter: 2017Q1

REPORT INFORMATION
  Report Type: Spontaneous
  Country: SE (occurrence: SE)
  Receive Date: 20170106
  Receipt Date: 20170106
  Transmission Date: 20170428
  Serious: Yes (Hospitalization)
  Sender: FDA-Public Use
  Company Number: SE-TEVA-725091ACC

PATIENT
  Age: 40 Year
  Sex: Female

DRUGS (2)
  1. OXASCAND [Suspect]
     Active Substance: OXAZEPAM
     Dates: start: 20161109, end: 20161109
  2. PROPAVAN 25 MG TABLET [Suspect]
     Active Substance: PROPIOMAZINE
     Dates: start: 20161109, end: 20161109

REACTIONS (4)
  - Intentional self-injury [Unknown]
  - Depressed level of consciousness [Unknown]
  - Somnolence [Unknown]
  - Toxicity to various agents [Unknown]

NARRATIVE: CASE EVENT DATE: 20161109
